FAERS Safety Report 4846237-9 (Version None)
Quarter: 2005Q4

REPORT INFORMATION
  Report Type: 
  Country: None (occurrence: None)
  Receive Date: 20051202
  Receipt Date: 20051202
  Transmission Date: 20060501
  Serious: No
  Sender: FDA-Public Use
  Company Number: None

PATIENT
  Age: 58 Year
  Sex: Male
  Weight: 143.7903 kg

DRUGS (12)
  1. CIALIS [Suspect]
     Indication: ERECTILE DYSFUNCTION
     Dosage: 20 MG EVERY OTHER DAY FOR 3 DOSES
     Dates: start: 20050801
  2. AVANDIA [Concomitant]
  3. IBUPROFEN [Concomitant]
  4. ASPIRIN [Concomitant]
  5. NEXIUM [Concomitant]
  6. DIOVAN [Concomitant]
  7. LIPITOR [Concomitant]
  8. NORVASC [Concomitant]
  9. GLUCOVANCE [Concomitant]
  10. ATENOLOL [Concomitant]
  11. XENICAL [Concomitant]
  12. TRENTAL [Concomitant]

REACTIONS (2)
  - INSOMNIA [None]
  - PAIN IN EXTREMITY [None]
